FAERS Safety Report 20461344 (Version 1)
Quarter: 2022Q1

REPORT INFORMATION
  Report Type: Spontaneous
  Country: US (occurrence: US)
  Receive Date: 20220211
  Receipt Date: 20220211
  Transmission Date: 20220423
  Serious: Yes (Death, Other)
  Sender: FDA-Public Use
  Company Number: US-OTSUKA-2022_004855

PATIENT
  Age: 9 Month

DRUGS (1)
  1. BUSULFAN [Suspect]
     Active Substance: BUSULFAN
     Indication: Bone marrow conditioning regimen
     Dosage: UNK
     Route: 065

REACTIONS (4)
  - Respiratory failure [Fatal]
  - Acute respiratory distress syndrome [Unknown]
  - Venoocclusive liver disease [Unknown]
  - Product use in unapproved indication [Unknown]
